FAERS Safety Report 8612282-0 (Version None)
Quarter: 2012Q3

REPORT INFORMATION
  Report Type: 
  Country: None (occurrence: None)
  Receive Date: 20120813
  Receipt Date: 20120813
  Transmission Date: 20120928
  Serious: Yes (Other)
  Sender: FDA-Public Use
  Company Number: None

PATIENT
  Sex: Female
  Weight: 63.5036 kg

DRUGS (1)
  1. SUBOXONE [Suspect]
     Indication: DRUG DEPENDENCE
     Dosage: 8/2 MG FILM EVERY DAY SUBLINGUAL
     Route: 060
     Dates: start: 20120803, end: 20120810

REACTIONS (2)
  - SCAR [None]
  - SKIN LESION [None]
